FAERS Safety Report 9917832 (Version 1)
Quarter: 2014Q1

REPORT INFORMATION
  Report Type: Report from Study
  Country: US (occurrence: US)
  Receive Date: 20140221
  Receipt Date: 20140221
  Transmission Date: 20141002
  Serious: Yes (Hospitalization)
  Sender: FDA-Public Use
  Company Number: US-ABBVIE-14P-163-1203605-00

PATIENT
  Age: 79 Year
  Sex: Female

DRUGS (5)
  1. HUMIRA [Suspect]
     Indication: PSORIATIC ARTHROPATHY
     Dates: start: 20131104
  2. CADUET [Concomitant]
     Indication: HYPERTENSION
     Dosage: DAILY
  3. MEDICATION FOR REFLUX [Concomitant]
     Indication: PRODUCT USED FOR UNKNOWN INDICATION
     Dosage: DAILY
  4. VITAMIN B12 [Concomitant]
     Indication: VITAMIN SUPPLEMENTATION
  5. EPI-PEN [Concomitant]
     Indication: HYPERSENSITIVITY

REACTIONS (5)
  - Bradycardia [Unknown]
  - Lethargy [Unknown]
  - Injection site pruritus [Recovering/Resolving]
  - Injection site inflammation [Recovering/Resolving]
  - Injection site rash [Recovering/Resolving]
